FAERS Safety Report 4836923-9 (Version None)
Quarter: 2005Q4

REPORT INFORMATION
  Report Type: 
  Country: None (occurrence: None)
  Receive Date: 20051123
  Receipt Date: 20051114
  Transmission Date: 20060501
  Serious: Yes (Hospitalization, Other)
  Sender: FDA-Public Use
  Company Number: JP-MERCK-0511USA02270

PATIENT
  Age: 44 Year
  Sex: Female

DRUGS (2)
  1. PRINIVIL [Suspect]
     Indication: HYPERTENSION
     Route: 048
  2. VALSARTAN [Suspect]
     Indication: HYPERTENSION
     Route: 065

REACTIONS (2)
  - ANGIONEUROTIC OEDEMA [None]
  - SMALL INTESTINE CARCINOMA [None]
